FAERS Safety Report 25190447 (Version 1)
Quarter: 2025Q2

REPORT INFORMATION
  Report Type: Spontaneous
  Country: CN (occurrence: CN)
  Receive Date: 20250411
  Receipt Date: 20250411
  Transmission Date: 20250717
  Serious: Yes (Other)
  Sender: ROCHE
  Company Number: CN-ROCHE-10000254730

PATIENT
  Age: 59 Year
  Sex: Male
  Weight: 63 kg

DRUGS (1)
  1. RITUXIMAB [Suspect]
     Active Substance: RITUXIMAB
     Indication: Glomerulonephritis membranous
     Dosage: ON 26-MAR-2025, HE RECEIVED HIS LAST DOSE OF STUDY DRUG.
     Route: 042
     Dates: start: 20250326

REACTIONS (2)
  - Anaphylactic shock [Recovering/Resolving]
  - Off label use [Unknown]

NARRATIVE: CASE EVENT DATE: 20250326
